FAERS Safety Report 6781690-5 (Version None)
Quarter: 2010Q2

REPORT INFORMATION
  Report Type: 
  Country: None (occurrence: None)
  Receive Date: 20100617
  Receipt Date: 20100617
  Transmission Date: 20101027
  Serious: Yes (Other)
  Sender: FDA-Public Use
  Company Number: None

PATIENT
  Age: 67 Year
  Sex: Male
  Weight: 77.1115 kg

DRUGS (1)
  1. CRESTOR [Suspect]
     Indication: POLYMYALGIA RHEUMATICA
     Dosage: 20 MG DAILY PO
     Route: 048
     Dates: start: 20100501, end: 20100511

REACTIONS (1)
  - POLYMYALGIA RHEUMATICA [None]
